FAERS Safety Report 5866024-2 (Version None)
Quarter: 2008Q3

REPORT INFORMATION
  Report Type: 
  Country: None (occurrence: None)
  Receive Date: 20080829
  Receipt Date: 20080821
  Transmission Date: 20090109
  Serious: Yes (Other)
  Sender: FDA-Public Use
  Company Number: KR-PFIZER INC-2008062424

PATIENT
  Age: 67 Year
  Sex: Male

DRUGS (2)
  1. LIPITOR [Suspect]
     Route: 048
  2. MICARDIS HCT [Concomitant]
     Route: 048

REACTIONS (3)
  - ACNE [None]
  - PROSTATIC OPERATION [None]
  - PRURITUS [None]
